FAERS Safety Report 4723834-2 (Version None)
Quarter: 2005Q3

REPORT INFORMATION
  Report Type: 
  Country: None (occurrence: None)
  Receive Date: 20050721
  Receipt Date: 20050711
  Transmission Date: 20060218
  Serious: Yes (Hospitalization)
  Sender: FDA-Public Use
  Company Number: P200500014

PATIENT
  Age: 83 Year
  Sex: Male
  Weight: 83 kg

DRUGS (21)
  1. PLENAXIS [Suspect]
     Indication: PROSTATE CANCER
     Dosage: 100 MG  SINGLE INTRAMUSCULAR
     Route: 030
     Dates: start: 20040824, end: 20040824
  2. PROSCAR [Concomitant]
  3. NEXIUM [Concomitant]
  4. FLOMAX ^BOEHRINGER INGELHEIM^ (TAMSULOSIN HYDROCHLORIDE) [Concomitant]
  5. KETOCONAZOLE [Concomitant]
  6. PREDNISONE [Concomitant]
  7. BISOPROLOL W/HYDROCHLOROTHIAZIDE (HYDROCHLOROTHIAZIDE, BISOPROLOL) [Concomitant]
  8. MULTIVITAMINS (RIBOFLAVIN, RETINOL, PANTHENOL, FOLIC ACID, ERGOCALCIFE [Concomitant]
  9. DETROL -SLOW RELEASE (TOLTERODINE L-TARTRATE) [Concomitant]
  10. BACTRIM [Concomitant]
  11. AMOXICILLIN [Concomitant]
  12. URECHOLINE (BEHANECHOL CHLORIDE) [Concomitant]
  13. CIPROXIN [Concomitant]
  14. FUROSEMIDE (FUROSEMIDE) [Concomitant]
  15. KLOR-CON [Concomitant]
  16. LUPRON [Concomitant]
  17. FERROUS GLUCONATE (FERROUS GLUCONATE) [Concomitant]
  18. GEMIFLOXACIN (GEMIFLOXACIN) [Concomitant]
  19. COUMADIN [Concomitant]
  20. WARFARIN SODIUM [Concomitant]
  21. LASIX [Concomitant]

REACTIONS (23)
  - BENIGN PROSTATIC HYPERPLASIA [None]
  - BLOOD CHLORIDE DECREASED [None]
  - BLOOD PHOSPHORUS INCREASED [None]
  - BLOOD PRESSURE SYSTOLIC INCREASED [None]
  - BRONCHITIS [None]
  - CARBON DIOXIDE DECREASED [None]
  - DIARRHOEA [None]
  - HAEMATOCRIT DECREASED [None]
  - HAEMOGLOBIN DECREASED [None]
  - HEADACHE [None]
  - HYDRONEPHROSIS [None]
  - HYPERKALAEMIA [None]
  - INTERNATIONAL NORMALISED RATIO INCREASED [None]
  - MELAENA [None]
  - METASTASES TO BONE [None]
  - MONOCYTE COUNT INCREASED [None]
  - MYALGIA [None]
  - OEDEMA [None]
  - OSTEOARTHRITIS [None]
  - PARAESTHESIA [None]
  - PROSTATIC SPECIFIC ANTIGEN INCREASED [None]
  - PROTHROMBIN TIME PROLONGED [None]
  - RENAL FAILURE ACUTE [None]
